FAERS Safety Report 8585995-7 (Version None)
Quarter: 2012Q3

REPORT INFORMATION
  Report Type: 
  Country: None (occurrence: None)
  Receive Date: 20120802
  Receipt Date: 20120802
  Transmission Date: 20120928
  Serious: Yes (Hospitalization)
  Sender: FDA-Public Use
  Company Number: None

PATIENT
  Sex: Female
  Weight: 16.9 kg

DRUGS (6)
  1. METHOTREXATE [Suspect]
     Dosage: 1040 MG
  2. BACTRIM [Concomitant]
  3. ZOFRAN [Concomitant]
  4. VINCRISTINE SULFATE [Suspect]
     Dosage: 5 MG
  5. CEFTAZIDIME [Concomitant]
  6. MORPHINE SULFATE [Concomitant]

REACTIONS (14)
  - STAPHYLOCOCCUS TEST POSITIVE [None]
  - OESOPHAGEAL ULCER [None]
  - DIFFUSE ALVEOLAR DAMAGE [None]
  - PYREXIA [None]
  - VOMITING [None]
  - RASH MACULO-PAPULAR [None]
  - PULMONARY ALVEOLAR HAEMORRHAGE [None]
  - PARONYCHIA [None]
  - STOMATITIS [None]
  - HYPOPHAGIA [None]
  - PULSELESS ELECTRICAL ACTIVITY [None]
  - MUCOSAL INFLAMMATION [None]
  - RESPIRATORY FAILURE [None]
  - LOSS OF CONSCIOUSNESS [None]
